FAERS Safety Report 4361727-3 (Version None)
Quarter: 2004Q2

REPORT INFORMATION
  Report Type: 
  Country: None (occurrence: None)
  Receive Date: 20040521
  Receipt Date: 20040302
  Transmission Date: 20050107
  Serious: No
  Sender: FDA-Public Use
  Company Number: US-GLAXOSMITHKLINE-A0500867A

PATIENT
  Age: 46 Year
  Sex: Female

DRUGS (13)
  1. WELLBUTRIN [Suspect]
     Indication: DEPRESSION
     Dosage: 150MG PER DAY
     Route: 048
     Dates: start: 20040203
  2. PROVIGIL [Concomitant]
  3. VALIUM [Concomitant]
  4. PREVACID [Concomitant]
  5. TRICOR [Concomitant]
  6. ZANAFLEX [Concomitant]
  7. DARVOCET [Concomitant]
  8. CLIMARA [Concomitant]
  9. ACTONEL [Concomitant]
  10. LEVOXYL [Concomitant]
  11. CRYSTALLINE VIT B12 INJ [Concomitant]
  12. BETASERON [Concomitant]
  13. NIASPAN [Concomitant]
     Route: 065

REACTIONS (2)
  - AGITATION [None]
  - DIZZINESS [None]
